FAERS Safety Report 5380403-1 (Version None)
Quarter: 2007Q3

REPORT INFORMATION
  Report Type: 
  Country: None (occurrence: None)
  Receive Date: 20070706
  Receipt Date: 20070524
  Transmission Date: 20080115
  Serious: No
  Sender: FDA-Public Use
  Company Number: A0652891A

PATIENT
  Age: 81 Year
  Sex: Female

DRUGS (11)
  1. TYKERB [Suspect]
     Indication: BREAST CANCER
     Dosage: 3TAB PER DAY
     Route: 048
     Dates: start: 20070425
  2. XELODA [Concomitant]
  3. DIGOXIN [Concomitant]
  4. TOPROL-XL [Concomitant]
  5. PREDNISONE TAB [Concomitant]
  6. ALLOPURINOL [Concomitant]
  7. CALTRATE [Concomitant]
  8. COUMADIN [Concomitant]
  9. IRON [Concomitant]
  10. ALPRAZOLAM [Concomitant]
  11. TRAMADOL HCL [Concomitant]

REACTIONS (3)
  - DIARRHOEA [None]
  - NAUSEA [None]
  - VOMITING [None]
